FAERS Safety Report 17070984 (Version 4)
Quarter: 2022Q1

REPORT INFORMATION
  Report Type: Spontaneous
  Country: US (occurrence: US)
  Receive Date: 20191125
  Receipt Date: 20220121
  Transmission Date: 20220423
  Serious: Yes (Other)
  Sender: FDA-Public Use
  Company Number: US-PFIZER INC-2019504354

PATIENT
  Age: 55 Year
  Sex: Female

DRUGS (2)
  1. XELJANZ [Suspect]
     Active Substance: TOFACITINIB CITRATE
     Indication: Rheumatoid arthritis
     Dosage: 5 MG, 2X/DAY
     Route: 048
     Dates: start: 20180918
  2. XELJANZ [Suspect]
     Active Substance: TOFACITINIB CITRATE
     Dosage: 5 MG, 1X/DAY
     Route: 048
     Dates: start: 2018

REACTIONS (13)
  - Aortic valve incompetence [Unknown]
  - Angina pectoris [Unknown]
  - Aortic arteriosclerosis [Unknown]
  - Intracranial aneurysm [Unknown]
  - Malaise [Unknown]
  - Depressed mood [Unknown]
  - Memory impairment [Unknown]
  - Product dose omission issue [Unknown]
  - Pain [Unknown]
  - Contusion [Recovering/Resolving]
  - Pain in extremity [Unknown]
  - Product dose omission in error [Unknown]
  - Intentional product use issue [Unknown]

NARRATIVE: CASE EVENT DATE: 20210527
